FAERS Safety Report 14003041 (Version 1)
Quarter: 2017Q3

REPORT INFORMATION
  Report Type: Spontaneous
  Country: US (occurrence: US)
  Receive Date: 20170922
  Receipt Date: 20170922
  Transmission Date: 20171128
  Serious: No
  Sender: FDA-Public Use
  Company Number: US-ELI_LILLY_AND_COMPANY-US201709003672

PATIENT
  Age: 9 Year
  Sex: Male
  Weight: 27.21 kg

DRUGS (7)
  1. ASPIRIN                            /00002701/ [Concomitant]
     Active Substance: ASPIRIN
  2. ADCIRCA [Suspect]
     Active Substance: TADALAFIL
     Indication: PULMONARY ARTERIAL HYPERTENSION
     Dosage: UNK UNK, UNKNOWN
     Route: 065
  3. LASIX [Concomitant]
     Active Substance: FUROSEMIDE
  4. PYRIDOXINE [Concomitant]
     Active Substance: PYRIDOXINE
  5. AMBRISENTAN [Suspect]
     Active Substance: AMBRISENTAN
     Indication: PULMONARY ARTERIAL HYPERTENSION
     Dosage: 5 MG, DAILY
     Route: 048
  6. TYVASO [Suspect]
     Active Substance: TREPROSTINIL
     Indication: PULMONARY ARTERIAL HYPERTENSION
     Dosage: 36 UG, QID
     Route: 065
     Dates: start: 20140911
  7. KEPPRA [Concomitant]
     Active Substance: LEVETIRACETAM

REACTIONS (3)
  - Abnormal behaviour [Not Recovered/Not Resolved]
  - Off label use [Not Recovered/Not Resolved]
  - Aggression [Not Recovered/Not Resolved]

NARRATIVE: CASE EVENT DATE: 201707
